FAERS Safety Report 18356469 (Version 1)
Quarter: 2020Q4

REPORT INFORMATION
  Report Type: Report from Study
  Country: US (occurrence: US)
  Receive Date: 20201007
  Receipt Date: 20201007
  Transmission Date: 20210114
  Serious: Yes (Hospitalization)
  Sender: FDA-Public Use
  Company Number: US-JNJFOC-20200948516

PATIENT
  Sex: Male
  Weight: 113.05 kg

DRUGS (1)
  1. MACITENTAN [Suspect]
     Active Substance: MACITENTAN
     Indication: PULMONARY ARTERIAL HYPERTENSION
     Route: 048

REACTIONS (5)
  - Polyp [Unknown]
  - Blood urine present [Unknown]
  - Pulmonary thrombosis [Unknown]
  - Rectal haemorrhage [Unknown]
  - Full blood count decreased [Unknown]
